FAERS Safety Report 6362773-0 (Version None)
Quarter: 2009Q3

REPORT INFORMATION
  Report Type: 
  Country: None (occurrence: None)
  Receive Date: 20090919
  Receipt Date: 20090608
  Transmission Date: 20100115
  Serious: No
  Sender: FDA-Public Use
  Company Number: US-ABBOTT-09P-163-0578622-00

PATIENT
  Sex: Female
  Weight: 56.75 kg

DRUGS (2)
  1. HUMIRA [Suspect]
     Indication: CROHN'S DISEASE
     Route: 058
     Dates: start: 20070101
  2. HUMIRA [Suspect]
     Dosage: PRE-FILLED SYRINGE, 1 IN 2 WEEKS
     Route: 058
     Dates: start: 20050801, end: 20070101

REACTIONS (3)
  - CROHN'S DISEASE [None]
  - DRUG DOSE OMISSION [None]
  - NASOPHARYNGITIS [None]
